FAERS Safety Report 21325122 (Version 2)
Quarter: 2022Q3

REPORT INFORMATION
  Report Type: Spontaneous
  Country: DE (occurrence: DE)
  Receive Date: 20220912
  Receipt Date: 20220916
  Transmission Date: 20221026
  Serious: Yes (Congenital Anomaly, Other)
  Sender: FDA-Public Use
  Company Number: DE-SERVIER-S16012491

PATIENT

DRUGS (3)
  1. VENLAFAXINE HCL [Suspect]
     Active Substance: VENLAFAXINE HYDROCHLORIDE
     Dosage: 300 MG, QD
     Route: 064
  2. DOXEPIN [Suspect]
     Active Substance: DOXEPIN
     Dosage: 100 MG, QD
     Route: 064
  3. AGOMELATINE [Suspect]
     Active Substance: AGOMELATINE
     Dosage: 25 MG, QD
     Route: 064

REACTIONS (2)
  - Congenital hydronephrosis [Unknown]
  - Foetal exposure during pregnancy [Recovered/Resolved]
